FAERS Safety Report 8576610-7 (Version None)
Quarter: 2012Q3

REPORT INFORMATION
  Report Type: 
  Country: None (occurrence: None)
  Receive Date: 20120807
  Receipt Date: 20120710
  Transmission Date: 20120928
  Serious: No
  Sender: FDA-Public Use
  Company Number: US-009507513-2012SP036251

PATIENT

DRUGS (7)
  1. PROZAC [Concomitant]
     Indication: POST-TRAUMATIC STRESS DISORDER
     Dosage: UNK, UNKNOWN
  2. CLARITIN-D 24 HOUR [Suspect]
     Indication: SNEEZING
  3. SIMVASTATIN [Concomitant]
     Indication: HYPERCHOLESTEROLAEMIA
     Dosage: UNK, UNKNOWN
  4. CYANOCOBALAMIN [Concomitant]
     Indication: VITAMIN B12 DEFICIENCY
     Dosage: UNK, UNKNOWN
  5. CLARITIN-D 24 HOUR [Suspect]
     Indication: RHINORRHOEA
  6. CLARITIN-D 24 HOUR [Suspect]
     Indication: HYPERSENSITIVITY
     Dosage: 10 MG, QD
     Route: 048
     Dates: start: 20120301, end: 20120401
  7. CHOLECALCIFEROL [Concomitant]
     Indication: VITAMIN D DEFICIENCY
     Dosage: UNK, UNKNOWN

REACTIONS (1)
  - DRUG INEFFECTIVE [None]
